FAERS Safety Report 13570871 (Version 2)
Quarter: 2017Q3

REPORT INFORMATION
  Report Type: Spontaneous
  Country: US (occurrence: US)
  Receive Date: 20170523
  Receipt Date: 20170703
  Transmission Date: 20171127
  Serious: Yes (Life-Threatening, Other)
  Sender: FDA-Public Use
  Company Number: US-AUROBINDO-AUR-APL-2017-34238

PATIENT
  Age: 42 Year
  Sex: Male

DRUGS (3)
  1. FLECAINIDE 50 MG [Suspect]
     Active Substance: FLECAINIDE
     Dosage: 100 MG, TWO TIMES A DAY
     Route: 065
     Dates: start: 2015
  2. SOTALOL. [Suspect]
     Active Substance: SOTALOL
     Indication: CARDIOMYOPATHY
     Dosage: 120 MG, TWO TIMES A DAY
     Route: 065
     Dates: start: 201501
  3. FLECAINIDE 50 MG [Suspect]
     Active Substance: FLECAINIDE
     Indication: CARDIOMYOPATHY
     Dosage: 50 MG, TWO TIMES A DAY
     Route: 065
     Dates: start: 201501

REACTIONS (1)
  - Treatment failure [Unknown]

NARRATIVE: CASE EVENT DATE: 2015
